FAERS Safety Report 7224465-5 (Version None)
Quarter: 2011Q1

REPORT INFORMATION
  Report Type: 
  Country: None (occurrence: None)
  Receive Date: 20110106
  Receipt Date: 20110106
  Transmission Date: 20110831
  Serious: Yes (Life-Threatening, Hospitalization)
  Sender: FDA-Public Use
  Company Number: None

PATIENT
  Age: 54 Year
  Sex: Male
  Weight: 80.7403 kg

DRUGS (2)
  1. ANCEF [Suspect]
     Indication: OSTEOMYELITIS
     Dosage: 2GM EVERY 8HRS IV PICCLINE
     Route: 042
     Dates: start: 20101119
  2. ANCEF [Suspect]
     Indication: OSTEOMYELITIS
     Dosage: 2GM EVERY 8HRS IV PICCLINE
     Route: 042
     Dates: start: 20101210

REACTIONS (1)
  - HEPATITIS ACUTE [None]
